FAERS Safety Report 8439158-6 (Version None)
Quarter: 2012Q2

REPORT INFORMATION
  Report Type: 
  Country: None (occurrence: None)
  Receive Date: 20120615
  Receipt Date: 20120612
  Transmission Date: 20120825
  Serious: No
  Sender: FDA-Public Use
  Company Number: US-BAYER-2012-059079

PATIENT

DRUGS (2)
  1. EXCEDRIN [CAFFEINE,PARACETAMOL] [Concomitant]
     Indication: PAIN
     Dosage: 2 DF, UNK
     Route: 048
  2. ALEVE (CAPLET) [Suspect]
     Dosage: 2 DF, UNK
     Route: 048

REACTIONS (1)
  - PAIN [None]
